FAERS Safety Report 17760668 (Version 15)
Quarter: 2022Q2

REPORT INFORMATION
  Report Type: Report from Study
  Country: US (occurrence: US)
  Receive Date: 20200508
  Receipt Date: 20220609
  Transmission Date: 20220721
  Serious: Yes (Other)
  Sender: FDA-Public Use
  Company Number: US-BIOVITRUM-2020US2124

PATIENT
  Sex: Male

DRUGS (9)
  1. KINERET [Suspect]
     Active Substance: ANAKINRA
     Indication: Rheumatoid arthritis
     Route: 058
     Dates: start: 20200421
  2. WARFARIN [Concomitant]
     Active Substance: WARFARIN
  3. SULFASALAZINE [Concomitant]
     Active Substance: SULFASALAZINE
  4. METOLAZONE [Concomitant]
     Active Substance: METOLAZONE
  5. METOPROLOL [Concomitant]
     Active Substance: METOPROLOL
  6. ALLOPURINOL [Concomitant]
     Active Substance: ALLOPURINOL
  7. Butanamide [Concomitant]
  8. FUROSEMIDE [Concomitant]
     Active Substance: FUROSEMIDE
  9. LISINOPRIL [Concomitant]
     Active Substance: LISINOPRIL

REACTIONS (21)
  - Cellulitis [Unknown]
  - Balance disorder [Unknown]
  - Confusional state [Unknown]
  - Peripheral swelling [Unknown]
  - Oedema peripheral [Unknown]
  - Irritability [Unknown]
  - Disorganised speech [Unknown]
  - Dysphemia [Unknown]
  - Dysarthria [Unknown]
  - Thinking abnormal [Unknown]
  - Pain in extremity [Unknown]
  - Arthralgia [Not Recovered/Not Resolved]
  - Chills [Unknown]
  - Gait disturbance [Unknown]
  - Loss of personal independence in daily activities [Unknown]
  - Arthropathy [Unknown]
  - Injection site erythema [Unknown]
  - Injection site pruritus [Unknown]
  - Headache [Recovered/Resolved]
  - Product dose omission issue [Unknown]
  - Drug ineffective [Unknown]
